FAERS Safety Report 9112183 (Version 2)
Quarter: 2013Q4

REPORT INFORMATION
  Report Type: Spontaneous
  Country: US (occurrence: US)
  Receive Date: 20130219
  Receipt Date: 20131101
  Transmission Date: 20140711
  Serious: Yes (Hospitalization)
  Sender: FDA-Public Use
  Company Number: US-BRISTOL-MYERS SQUIBB COMPANY-16847758

PATIENT
  Age: 62 Year
  Sex: Female

DRUGS (3)
  1. ABATACEPT SUBQ INJECTION 125MG/ML [Suspect]
     Indication: RHEUMATOID ARTHRITIS
     Dosage: ORENCIA?3B76048,NOV2014?LAST DOSE 15-OCT-2013
     Route: 058
     Dates: start: 201203
  2. ANCEF [Concomitant]
     Route: 042
  3. CRANBERRY [Concomitant]
     Dosage: TABLETS

REACTIONS (7)
  - Urinary tract infection [Unknown]
  - Coma [Unknown]
  - Agitation [Unknown]
  - Blood magnesium decreased [Unknown]
  - Blood sodium decreased [Unknown]
  - Blood potassium decreased [Unknown]
  - Hypersensitivity [Unknown]
